FAERS Safety Report 6542634-4 (Version None)
Quarter: 2010Q1

REPORT INFORMATION
  Report Type: 
  Country: None (occurrence: None)
  Receive Date: 20100119
  Receipt Date: 20100107
  Transmission Date: 20100710
  Serious: Yes (Other)
  Sender: FDA-Public Use
  Company Number: US-ELI_LILLY_AND_COMPANY-US201001001239

PATIENT
  Sex: Male

DRUGS (2)
  1. ZYPREXA [Suspect]
  2. CLOZAPINE [Concomitant]
     Dosage: 100 MG, UNK

REACTIONS (1)
  - GRANULOCYTOPENIA [None]
